FAERS Safety Report 24350716 (Version 3)
Quarter: 2024Q4

REPORT INFORMATION
  Report Type: Spontaneous
  Country: AU (occurrence: AU)
  Receive Date: 20240923
  Receipt Date: 20241216
  Transmission Date: 20250115
  Serious: Yes (Hospitalization, Other)
  Sender: PFIZER
  Company Number: AU-PFIZER INC-202400257901

PATIENT
  Age: 34 Year
  Sex: Female

DRUGS (1)
  1. GENOTROPIN [Suspect]
     Active Substance: SOMATROPIN
     Indication: Growth hormone deficiency
     Dosage: REGULARLY

REACTIONS (2)
  - Adrenocortical insufficiency acute [Unknown]
  - Vomiting [Unknown]
